FAERS Safety Report 19616745 (Version 2)
Quarter: 2021Q3

REPORT INFORMATION
  Report Type: Report from Study
  Country: NL (occurrence: NL)
  Receive Date: 20210728
  Receipt Date: 20210930
  Transmission Date: 20211014
  Serious: Yes (Other)
  Sender: FDA-Public Use
  Company Number: NL-CELLTRION INC.-2021NL009998

PATIENT

DRUGS (2)
  1. REMSIMA [Suspect]
     Active Substance: INFLIXIMAB
     Indication: PRODUCT USED FOR UNKNOWN INDICATION
     Dosage: 4 INJECTIONS
     Route: 058
     Dates: start: 20200918, end: 20201224
  2. HUMIRA [Concomitant]
     Active Substance: ADALIMUMAB

REACTIONS (8)
  - Iatrogenic injury [Unknown]
  - Nerve injury [Unknown]
  - Drug ineffective [Unknown]
  - Rheumatoid arthritis [Recovering/Resolving]
  - Injection site pain [Unknown]
  - Depressed mood [Unknown]
  - Product dose omission issue [Unknown]
  - Product administration error [Unknown]
